FAERS Safety Report 4766310-3 (Version None)
Quarter: 2005Q3

REPORT INFORMATION
  Report Type: 
  Country: None (occurrence: None)
  Receive Date: 20050909
  Receipt Date: 20050829
  Transmission Date: 20060218
  Serious: Yes (Hospitalization)
  Sender: FDA-Public Use
  Company Number: 2005-132211-NL

PATIENT
  Age: 29 Year
  Sex: Female

DRUGS (2)
  1. DANAPAROID [Suspect]
     Dosage: 1250 ANTI_XA/2500 ANTI_XA
  2. ASPIRIN [Concomitant]

REACTIONS (3)
  - DRUG EXPOSURE DURING PREGNANCY [None]
  - POSTPARTUM VENOUS THROMBOSIS [None]
  - PREMATURE LABOUR [None]
